FAERS Safety Report 11286017 (Version 1)
Quarter: 2015Q3

REPORT INFORMATION
  Report Type: Spontaneous
  Country: US (occurrence: US)
  Receive Date: 20150721
  Receipt Date: 20150721
  Transmission Date: 20151125
  Serious: Yes (Hospitalization)
  Sender: FDA-Public Use
  Company Number: US-ACCORD-032379

PATIENT
  Age: 60 Year
  Sex: Male

DRUGS (6)
  1. BUPROPION/BUPROPION HYDROCHLORIDE [Suspect]
     Active Substance: BUPROPION HYDROCHLORIDE
     Indication: BIPOLAR DISORDER
     Dosage: DISCONTINUED AROUND DAY 5 OF HOSPITALIZATION.
  2. ESCITALOPRAM [Suspect]
     Active Substance: ESCITALOPRAM OXALATE
     Indication: BIPOLAR DISORDER
     Dosage: DISCONTINUED AROUND DAY 5 OF HOSPITALIZATION.
  3. FENTANYL. [Suspect]
     Active Substance: FENTANYL
     Indication: SEDATION
     Dosage: CONTINUOUS INFUSION?DISCONTINUED AROUND DAY 5 OF HOSPITALIZATION.?RESTARTED ON DAY 11.
  4. ATORVASTATIN [Concomitant]
     Active Substance: ATORVASTATIN
  5. VALPROIC ACID. [Suspect]
     Active Substance: VALPROIC ACID
     Indication: BIPOLAR DISORDER
     Dosage: DISCONTINUED AROUND DAY 7 OF HOSPITALIZATION.
  6. RISPERIDONE. [Suspect]
     Active Substance: RISPERIDONE
     Indication: BIPOLAR DISORDER
     Dosage: DISCONTINUED AROUND DAY 5 OF HOSPITALIZATION.

REACTIONS (7)
  - Neuroleptic malignant syndrome [Recovered/Resolved]
  - Sepsis [None]
  - Streptococcus test positive [None]
  - Hypocalcaemia [None]
  - Hypernatraemia [None]
  - Respiratory failure [None]
  - Pneumonia [None]
